FAERS Safety Report 26142106 (Version 1)
Quarter: 2025Q4

REPORT INFORMATION
  Report Type: Spontaneous
  Country: EU (occurrence: EU)
  Receive Date: 20251210
  Receipt Date: 20251210
  Transmission Date: 20260118
  Serious: Yes (Life-Threatening, Hospitalization, Other)
  Sender: PFIZER
  Company Number: EU-SANDOZ-SDZ2025DK089262

PATIENT
  Age: 65 Year
  Sex: Male

DRUGS (1)
  1. METHOTREXATE SODIUM [Suspect]
     Active Substance: METHOTREXATE SODIUM
     Dosage: 20 MG, QW
     Route: 065

REACTIONS (6)
  - Infection in an immunocompromised host [Unknown]
  - Meningitis pneumococcal [Unknown]
  - Streptococcal endocarditis [Unknown]
  - Pneumonia pneumococcal [Unknown]
  - Endophthalmitis [Unknown]
  - Intervertebral discitis [Unknown]
